FAERS Safety Report 11938903 (Version 1)
Quarter: 2016Q1

REPORT INFORMATION
  Report Type: Spontaneous
  Country: JP (occurrence: JP)
  Receive Date: 20160122
  Receipt Date: 20160122
  Transmission Date: 20160526
  Serious: Yes (Death)
  Sender: FDA-Public Use
  Company Number: JP-CIPLA LTD.-2016JP00238

PATIENT

DRUGS (5)
  1. 5-HYDROXYTRYPTAMINE [Concomitant]
     Indication: PREMEDICATION
     Route: 065
  2. DEXAMETHASONE. [Concomitant]
     Active Substance: DEXAMETHASONE
     Indication: PREMEDICATION
     Route: 065
  3. TS-1 [Suspect]
     Active Substance: GIMERACIL\OTERACIL\TEGAFUR
     Indication: COLORECTAL CANCER METASTATIC
     Dosage: 80 MG/M2, BID, FOR 2 WEEKS, FOLLOWED BY A 1-WEEK DRUG-FREE INTERVAL
     Route: 048
  4. BEVACIZUMAB [Suspect]
     Active Substance: BEVACIZUMAB
     Indication: COLORECTAL CANCER METASTATIC
     Dosage: 7.5 MG/KG ADMINISTERED AS A 30- TO 90-MIN INFUSION
  5. IRINOTECAN [Suspect]
     Active Substance: IRINOTECAN
     Indication: COLORECTAL CANCER METASTATIC
     Dosage: 150 MG/ M2, 90-MIN INFUSION EVERY 3 WEEKS

REACTIONS (1)
  - Gastrointestinal haemorrhage [Fatal]
